FAERS Safety Report 6077313-3 (Version None)
Quarter: 2009Q1

REPORT INFORMATION
  Report Type: 
  Country: None (occurrence: None)
  Receive Date: 20090213
  Receipt Date: 20090205
  Transmission Date: 20090719
  Serious: Yes (Death, Hospitalization)
  Sender: FDA-Public Use
  Company Number: B0540972A

PATIENT
  Age: 70 Year
  Sex: Male

DRUGS (3)
  1. LANOXIN [Suspect]
     Indication: DRUG USE FOR UNKNOWN INDICATION
     Route: 042
     Dates: start: 20080829, end: 20080830
  2. HYDROMORPHONE HCL [Concomitant]
  3. FENTANYL [Concomitant]

REACTIONS (2)
  - BRONCHOPNEUMONIA [None]
  - MEDICATION ERROR [None]
